FAERS Safety Report 10724353 (Version 3)
Quarter: 2015Q1

REPORT INFORMATION
  Report Type: Spontaneous
  Country: US (occurrence: US)
  Receive Date: 20150120
  Receipt Date: 20150223
  Transmission Date: 20150721
  Serious: Yes (Death, Hospitalization, Other)
  Sender: FDA-Public Use
  Company Number: US-BAXTER-2015BAX002905

PATIENT
  Sex: Male

DRUGS (2)
  1. DIANEAL LOW CALCIUM PERITONEAL DIALYSIS SOLUTION WITH DEXTROSE [Suspect]
     Active Substance: CALCIUM CHLORIDE\DEXTROSE\MAGNESIUM CHLORIDE\SODIUM CHLORIDE\SODIUM LACTATE
     Indication: PERITONEAL DIALYSIS
     Route: 033
  2. DIANEAL LOW CALCIUM PERITONEAL DIALYSIS SOLUTION WITH DEXTROSE [Suspect]
     Active Substance: CALCIUM CHLORIDE\DEXTROSE\MAGNESIUM CHLORIDE\SODIUM CHLORIDE\SODIUM LACTATE
     Indication: PERITONEAL DIALYSIS
     Route: 033

REACTIONS (14)
  - Colitis [Unknown]
  - Clostridium difficile infection [Unknown]
  - Cardiac failure [Fatal]
  - Bacteraemia [Unknown]
  - Device related infection [Unknown]
  - Peritonitis [Unknown]
  - Gastrointestinal infection [Unknown]
  - Gastric infection [Not Recovered/Not Resolved]
  - Cholecystitis infective [Unknown]
  - Unevaluable event [Unknown]
  - Infection [Unknown]
  - Pulmonary oedema [Unknown]
  - Immunodeficiency [Unknown]
  - Pain [Not Recovered/Not Resolved]

NARRATIVE: CASE EVENT DATE: 20140112
